FAERS Safety Report 18104556 (Version 3)
Quarter: 2020Q4

REPORT INFORMATION
  Report Type: Report from Study
  Country: CA (occurrence: CA)
  Receive Date: 20200803
  Receipt Date: 20201203
  Transmission Date: 20210113
  Serious: Yes (Life-Threatening, Other)
  Sender: FDA-Public Use
  Company Number: CA-JNJFOC-20200606636

PATIENT
  Age: 37 Year
  Sex: Male
  Weight: 71 kg

DRUGS (3)
  1. STELARA [Suspect]
     Active Substance: USTEKINUMAB
     Indication: CROHN^S DISEASE
     Dosage: WEEK 0 DOSE, NEXT DOSES EVERY 8 WEEKS
     Route: 042
     Dates: start: 20200528
  2. STELARA [Suspect]
     Active Substance: USTEKINUMAB
     Route: 058
     Dates: start: 20201123
  3. STELARA [Suspect]
     Active Substance: USTEKINUMAB
     Route: 058
     Dates: start: 2020

REACTIONS (14)
  - Loss of consciousness [Unknown]
  - Oropharyngeal pain [Unknown]
  - Product use issue [Unknown]
  - Crohn^s disease [Not Recovered/Not Resolved]
  - Hypoaesthesia [Unknown]
  - Muscular weakness [Unknown]
  - Insomnia [Unknown]
  - Hallucination [Unknown]
  - Pain [Unknown]
  - Rash [Not Recovered/Not Resolved]
  - Vision blurred [Unknown]
  - Paraesthesia [Unknown]
  - Hyperglycaemia [Unknown]
  - Off label use [Unknown]

NARRATIVE: CASE EVENT DATE: 2020
